FAERS Safety Report 7659765-8 (Version None)
Quarter: 2011Q3

REPORT INFORMATION
  Report Type: 
  Country: None (occurrence: None)
  Receive Date: 20110805
  Receipt Date: 20101122
  Transmission Date: 20111222
  Serious: No
  Sender: FDA-Public Use
  Company Number: US-ABBOTT-10P-163-0687190-00

PATIENT
  Sex: Male
  Weight: 68.1 kg

DRUGS (3)
  1. DEPAKOTE ER [Suspect]
     Indication: ANXIETY
     Dosage: SAMPLE PACK
     Dates: start: 20101122
  2. VALIUM [Concomitant]
     Indication: ANXIETY
  3. OXYCODONE HCL [Concomitant]
     Indication: PAIN

REACTIONS (3)
  - VOMITING [None]
  - PAIN [None]
  - DIZZINESS [None]
